FAERS Safety Report 10750423 (Version 2)
Quarter: 2015Q1

REPORT INFORMATION
  Report Type: Report from Study
  Country: US (occurrence: US)
  Receive Date: 20150130
  Receipt Date: 20150304
  Transmission Date: 20150721
  Serious: Yes (Hospitalization)
  Sender: FDA-Public Use
  Company Number: US-BEH-2015048219

PATIENT
  Age: 68 Year
  Sex: Male

DRUGS (15)
  1. NYSTATIN. [Concomitant]
     Active Substance: NYSTATIN
  2. SIMVASTATIN. [Concomitant]
     Active Substance: SIMVASTATIN
  3. ZOLOFT [Concomitant]
     Active Substance: SERTRALINE HYDROCHLORIDE
  4. ZEMAIRA [Suspect]
     Active Substance: .ALPHA.1-PROTEINASE INHIBITOR HUMAN
     Indication: ALPHA-1 ANTI-TRYPSIN DEFICIENCY
     Dates: start: 20120329
  5. VANCOMYCIN [Concomitant]
     Active Substance: VANCOMYCIN
  6. OXYGEN. [Concomitant]
     Active Substance: OXYGEN
     Dosage: 3 LITERS @HS
  7. ZOSYN [Concomitant]
     Active Substance: PIPERACILLIN SODIUM\TAZOBACTAM SODIUM
  8. VITAMIN C [Concomitant]
     Active Substance: ASCORBIC ACID
  9. TAMIFLU [Concomitant]
     Active Substance: OSELTAMIVIR PHOSPHATE
  10. OSCAL [Concomitant]
     Active Substance: CALCIUM CARBONATE
  11. ALLOPURINOL. [Concomitant]
     Active Substance: ALLOPURINOL
  12. METOPROLOL [Concomitant]
     Active Substance: METOPROLOL
  13. ZOLPIDEM [Concomitant]
     Active Substance: ZOLPIDEM\ZOLPIDEM TARTRATE
  14. PULMICORT TURBUHALER [Concomitant]
     Active Substance: BUDESONIDE
  15. PERFOROMIST [Concomitant]
     Active Substance: FORMOTEROL FUMARATE DIHYDRATE
     Dosage: NEBS

REACTIONS (6)
  - Pneumonia [Recovered/Resolved]
  - Streptococcal infection [Recovered/Resolved]
  - Respiratory failure [Recovered/Resolved]
  - Staphylococcal infection [Recovered/Resolved]
  - Abdominal distension [Recovered/Resolved]
  - Pneumonia necrotising [Recovered/Resolved]

NARRATIVE: CASE EVENT DATE: 20141227
